FAERS Safety Report 7486139-5 (Version None)
Quarter: 2011Q2

REPORT INFORMATION
  Report Type: 
  Country: None (occurrence: None)
  Receive Date: 20110517
  Receipt Date: 20110512
  Transmission Date: 20111010
  Serious: Yes (Death, Other)
  Sender: FDA-Public Use
  Company Number: US-PFIZER INC-HQWYE195316JUL04

PATIENT
  Sex: Female
  Weight: 45 kg

DRUGS (17)
  1. PREMPRO [Suspect]
     Indication: CRYING
     Dosage: UNK
     Route: 048
     Dates: start: 19970119
  2. ESTRACE [Suspect]
     Indication: CRYING
     Dosage: UNK
  3. ESTRACE [Suspect]
     Indication: NIGHT SWEATS
  4. PREMPRO [Suspect]
     Indication: HOT FLUSH
  5. PREMARIN [Suspect]
     Indication: CRYING
     Dosage: UNK
     Route: 048
     Dates: start: 19970101
  6. PREMARIN [Suspect]
     Indication: NIGHT SWEATS
  7. ACETYLSALICYLIC ACID [Concomitant]
     Dosage: UNK
  8. PROVERA [Suspect]
     Indication: HOT FLUSH
  9. ESTRACE [Suspect]
     Indication: HORMONE REPLACEMENT THERAPY
  10. PREMPRO [Suspect]
     Indication: HORMONE REPLACEMENT THERAPY
  11. PREMPRO [Suspect]
     Indication: NIGHT SWEATS
  12. PREMARIN [Suspect]
     Indication: HORMONE REPLACEMENT THERAPY
  13. PREMARIN [Suspect]
     Indication: HOT FLUSH
  14. PROVERA [Suspect]
     Indication: CRYING
     Dosage: 2.5-10 MG
     Route: 048
  15. PROVERA [Suspect]
     Indication: NIGHT SWEATS
  16. PROVERA [Suspect]
     Indication: HORMONE REPLACEMENT THERAPY
  17. ESTRACE [Suspect]
     Indication: HOT FLUSH

REACTIONS (2)
  - BREAST CANCER METASTATIC [None]
  - DEATH [None]
